FAERS Safety Report 4393601-0 (Version None)
Quarter: 2004Q3

REPORT INFORMATION
  Report Type: 
  Country: None (occurrence: None)
  Receive Date: 20040706
  Receipt Date: 20040706
  Transmission Date: 20050211
  Serious: Yes (Hospitalization)
  Sender: FDA-Public Use
  Company Number: None

PATIENT
  Age: 52 Year
  Sex: Male

DRUGS (1)
  1. CLONAZEPAM [Suspect]
     Dosage: 1 MG PO BID
     Dates: start: 20031001

REACTIONS (2)
  - MEDICATION ERROR [None]
  - OVERDOSE [None]
